FAERS Safety Report 5704530-1 (Version None)
Quarter: 2008Q2

REPORT INFORMATION
  Report Type: 
  Country: None (occurrence: None)
  Receive Date: 20080414
  Receipt Date: 20080404
  Transmission Date: 20081010
  Serious: Yes (Hospitalization)
  Sender: FDA-Public Use
  Company Number: JP-ROCHE-554615

PATIENT
  Sex: Male
  Weight: 54 kg

DRUGS (11)
  1. TAMIFLU [Suspect]
     Indication: PYREXIA
     Route: 048
     Dates: start: 20080316, end: 20080316
  2. CLARITHROMYCIN [Suspect]
     Indication: DRUG USE FOR UNKNOWN INDICATION
     Route: 048
     Dates: start: 20080316
  3. NORVASC [Concomitant]
     Route: 048
  4. BLOPRESS [Concomitant]
     Route: 048
  5. BEZATOL SR [Concomitant]
     Route: 048
  6. ALLOPURINOL [Concomitant]
     Route: 048
  7. EPADEL [Concomitant]
     Route: 048
  8. DEPAS [Concomitant]
     Route: 048
  9. LOXONIN [Concomitant]
     Route: 048
  10. SELBEX [Concomitant]
     Route: 048
  11. CLEANAL [Concomitant]
     Route: 048

REACTIONS (1)
  - CHOLESTASIS [None]
